FAERS Safety Report 22613863 (Version 1)
Quarter: 2023Q2

REPORT INFORMATION
  Report Type: Spontaneous
  Country: US (occurrence: US)
  Receive Date: 20230619
  Receipt Date: 20230619
  Transmission Date: 20230721
  Serious: No
  Sender: FDA-Public Use
  Company Number: US-drreddys-SPO/USA/23/0165932

PATIENT
  Age: 18 Year
  Sex: Female

DRUGS (3)
  1. ZENATANE [Suspect]
     Active Substance: ISOTRETINOIN
     Indication: Acne
     Dosage: RMA ISSUE DATE:09 DECEMBER 2022 01:55:10 PM,12 JANUARY 2023 04:43:25 PM
  2. ZENATANE [Suspect]
     Active Substance: ISOTRETINOIN
     Dosage: RMA ISSUE DATE:13 FEBRUARY 2023 03:47:36 PM,13 MARCH 2023 03:36:05 PM
  3. ZENATANE [Suspect]
     Active Substance: ISOTRETINOIN
     Dosage: RMA ISSUE DATE:18 APRIL 2023 04:58:01 PM

REACTIONS (1)
  - Adverse drug reaction [Unknown]
